FAERS Safety Report 12288057 (Version 2)
Quarter: 2016Q2

REPORT INFORMATION
  Report Type: Spontaneous
  Country: US (occurrence: US)
  Receive Date: 20160420
  Receipt Date: 20160425
  Transmission Date: 20160815
  Serious: No
  Sender: FDA-Public Use
  Company Number: US-MDT-ADR-2016-00193

PATIENT
  Age: 80 Year
  Sex: Male

DRUGS (5)
  1. VITAMIN C [Suspect]
     Active Substance: ASCORBIC ACID
  2. MULTIVITAMIN [Suspect]
     Active Substance: VITAMINS
  3. VITAMIN E [Suspect]
     Active Substance: .ALPHA.-TOCOPHEROL
  4. LIORESAL [Suspect]
     Active Substance: BACLOFEN
     Dosage: 124.9 MCG/DAY
     Route: 037
  5. ZINC [Suspect]
     Active Substance: ZINC\ZINC CHLORIDE

REACTIONS (1)
  - Urinary retention [Not Recovered/Not Resolved]

NARRATIVE: CASE EVENT DATE: 20160107
